FAERS Safety Report 8511286 (Version 3)
Quarter: 2013Q2

REPORT INFORMATION
  Report Type: Spontaneous
  Country: US (occurrence: US)
  Receive Date: 20120413
  Receipt Date: 20130408
  Transmission Date: 20140414
  Serious: No
  Sender: FDA-Public Use
  Company Number: US-ASTRAZENECA-2011SE72865

PATIENT
  Age: 21 Year
  Sex: Male

DRUGS (1)
  1. NEXIUM [Suspect]
     Indication: GASTROOESOPHAGEAL REFLUX DISEASE
     Route: 048

REACTIONS (12)
  - Pain [Unknown]
  - Bipolar disorder [Unknown]
  - Cow^s milk intolerance [Unknown]
  - Schizophrenia [Unknown]
  - Dyspepsia [Unknown]
  - Feeling abnormal [Unknown]
  - Dysphagia [Unknown]
  - Gastrooesophageal reflux disease [Unknown]
  - Vomiting [Unknown]
  - Retching [Unknown]
  - Malaise [Unknown]
  - Drug dose omission [Unknown]
